FAERS Safety Report 5295862-2 (Version None)
Quarter: 2007Q2

REPORT INFORMATION
  Report Type: 
  Country: None (occurrence: None)
  Receive Date: 20070413
  Receipt Date: 20070329
  Transmission Date: 20071010
  Serious: Yes (Death, Hospitalization)
  Sender: FDA-Public Use
  Company Number: ES-JNJFOC-20070304066

PATIENT
  Age: 43 Year
  Sex: Male
  Weight: 65 kg

DRUGS (5)
  1. REMICADE [Suspect]
     Route: 042
  2. REMICADE [Suspect]
     Route: 042
  3. REMICADE [Suspect]
     Route: 042
  4. REMICADE [Suspect]
     Indication: CROHN'S DISEASE
     Route: 042
  5. CLAVERSAL [Concomitant]

REACTIONS (5)
  - AMYLOIDOSIS [None]
  - CROHN'S DISEASE [None]
  - MULTI-ORGAN FAILURE [None]
  - NEPHRITIC SYNDROME [None]
  - RENAL FAILURE CHRONIC [None]
